FAERS Safety Report 8862576 (Version 2)
Quarter: 2012Q4

REPORT INFORMATION
  Report Type: Report from Study
  Country: JP (occurrence: JP)
  Receive Date: 20121026
  Receipt Date: 20121206
  Transmission Date: 20130627
  Serious: Yes (Other)
  Sender: FDA-Public Use
  Company Number: JP-VERTEX PHARMACEUTICAL INC.-2012-023489

PATIENT
  Age: 64 Year
  Sex: Male

DRUGS (13)
  1. VX-950 (TELAPREVIR) [Suspect]
     Indication: CHRONIC HEPATITIS C
     Dosage: 2250 mg, qd
     Route: 048
     Dates: start: 20120822, end: 20120828
  2. VX-950 (TELAPREVIR) [Suspect]
     Dosage: 1000 mg, qd
     Route: 048
     Dates: start: 20120829, end: 20120913
  3. RIBAVIRIN [Suspect]
     Indication: CHRONIC HEPATITIS C
     Dosage: 600 mg, qd
     Route: 048
     Dates: start: 20120822, end: 20120828
  4. RIBAVIRIN [Suspect]
     Dosage: 400 mg, qd
     Route: 048
     Dates: start: 20120829, end: 20120913
  5. PEGINTERFERON ALFA-2B [Suspect]
     Indication: CHRONIC HEPATITIS C
     Dosage: 1.5 ?g/kg, UNK
     Route: 058
     Dates: start: 20120822, end: 20120822
  6. PEGINTERFERON ALFA-2B [Suspect]
     Dosage: 50 ?g, UNK
     Route: 058
     Dates: start: 20120829, end: 20120829
  7. GASTER [Concomitant]
     Dosage: 20 mg, qd
     Route: 048
  8. PREMINENT [Concomitant]
     Dosage: 1 DF, qd
     Route: 048
  9. ARTIST [Concomitant]
     Dosage: 10 mg, qd
     Route: 048
  10. NORVASC OD [Concomitant]
     Dosage: 5 mg, qd
     Route: 048
  11. MUCOSTA [Concomitant]
     Dosage: 300 mg, qd
     Route: 048
     Dates: start: 20120823
  12. DOGMATYL [Concomitant]
     Dosage: 150 mg, qd
     Route: 048
     Dates: start: 20120823
  13. PAXIL [Concomitant]
     Dosage: 20 mg, qd
     Route: 048
     Dates: start: 20120827, end: 20120903

REACTIONS (1)
  - Renal disorder [Unknown]
